FAERS Safety Report 9276493 (Version 1)
Quarter: 2013Q2

REPORT INFORMATION
  Report Type: Spontaneous
  Country: AT (occurrence: AT)
  Receive Date: 20130507
  Receipt Date: 20130507
  Transmission Date: 20140414
  Serious: Yes (Life-Threatening, Hospitalization)
  Sender: FDA-Public Use
  Company Number: AT-ASTRAZENECA-2013SE31071

PATIENT
  Age: 44 Year
  Sex: Female

DRUGS (2)
  1. SEROQUEL XR [Suspect]
     Route: 048
     Dates: start: 20120624, end: 20120624
  2. SEROQUEL XR [Suspect]
     Route: 048
     Dates: start: 20120624, end: 20120624

REACTIONS (6)
  - Intentional overdose [Unknown]
  - Toxicity to various agents [Recovered/Resolved]
  - Coma [Recovered/Resolved]
  - Respiratory failure [Recovered/Resolved]
  - Muscle spasms [Recovered/Resolved]
  - Sinus tachycardia [Recovered/Resolved]
